FAERS Safety Report 18373991 (Version 1)
Quarter: 2020Q4

REPORT INFORMATION
  Report Type: Spontaneous
  Country: US (occurrence: US)
  Receive Date: 20201012
  Receipt Date: 20201012
  Transmission Date: 20210114
  Serious: Yes (Hospitalization, Other)
  Sender: FDA-Public Use
  Company Number: US-PURDUE-USA-2020-0169254

PATIENT
  Sex: Female

DRUGS (2)
  1. HYDROCODONE BITARTRATE AND ACETAMINOPHEN [Suspect]
     Active Substance: ACETAMINOPHEN\HYDROCODONE BITARTRATE
     Indication: PAIN
     Dosage: UNK
     Route: 048
  2. OXYCONTIN [Suspect]
     Active Substance: OXYCODONE HYDROCHLORIDE
     Indication: PAIN
     Dosage: UNK
     Route: 048

REACTIONS (18)
  - Lung disorder [Unknown]
  - Gait disturbance [Unknown]
  - Diarrhoea [Unknown]
  - Amnesia [Unknown]
  - Cardiac disorder [Unknown]
  - Drug dependence [Unknown]
  - Chronic obstructive pulmonary disease [Unknown]
  - Stent placement [Unknown]
  - Functional gastrointestinal disorder [Unknown]
  - Fall [Unknown]
  - Joint injury [Unknown]
  - Impaired self-care [Unknown]
  - Rib fracture [Unknown]
  - Thrombosis [Unknown]
  - Hallucination [Unknown]
  - Respiration abnormal [Unknown]
  - Learning disability [Unknown]
  - Gastrointestinal disorder [Unknown]
